FAERS Safety Report 25542147 (Version 1)
Quarter: 2025Q3

REPORT INFORMATION
  Report Type: Report from Study
  Country: US (occurrence: US)
  Receive Date: 20250711
  Receipt Date: 20250711
  Transmission Date: 20251021
  Serious: Yes (Other)
  Sender: ABBVIE
  Company Number: US-ABBVIE-6363009

PATIENT
  Sex: Female

DRUGS (1)
  1. LINZESS [Suspect]
     Active Substance: LINACLOTIDE
     Indication: Product used for unknown indication
     Route: 048

REACTIONS (9)
  - Lung perforation [Unknown]
  - Chronic obstructive pulmonary disease [Unknown]
  - Muscle spasms [Unknown]
  - Osteoporosis [Unknown]
  - Arthritis [Unknown]
  - Body height decreased [Unknown]
  - Escherichia infection [Unknown]
  - Bone disorder [Unknown]
  - Gastrointestinal disorder [Unknown]
